FAERS Safety Report 11756959 (Version 2)
Quarter: 2015Q4

REPORT INFORMATION
  Report Type: Report from Study
  Country: AR (occurrence: AR)
  Receive Date: 20151120
  Receipt Date: 20151126
  Transmission Date: 20160304
  Serious: Yes (Death, Hospitalization)
  Sender: FDA-Public Use
  Company Number: AR-ACTELION-A-CH2015-124381

PATIENT
  Sex: Male

DRUGS (1)
  1. MACITENTAN [Suspect]
     Active Substance: MACITENTAN
     Indication: PRODUCT USED FOR UNKNOWN INDICATION
     Dosage: UNK
     Route: 048

REACTIONS (3)
  - Anaemia [Unknown]
  - Sudden death [Fatal]
  - Urinary tract infection [Unknown]
